FAERS Safety Report 12666828 (Version 40)
Quarter: 2025Q3

REPORT INFORMATION
  Report Type: Spontaneous
  Country: CA (occurrence: CA)
  Receive Date: 20160819
  Receipt Date: 20250806
  Transmission Date: 20251020
  Serious: Yes (Life-Threatening, Hospitalization, Other)
  Sender: BAUSCH AND LOMB
  Company Number: CA-BAUSCH-BL-2016-019424

PATIENT
  Age: 77 Year
  Sex: Female

DRUGS (49)
  1. DILTIAZEM [Suspect]
     Active Substance: DILTIAZEM
     Indication: Chest pain
     Route: 065
  2. DILTIAZEM [Suspect]
     Active Substance: DILTIAZEM
     Indication: Angina pectoris
     Dosage: DILTIAZEM
     Route: 065
  3. DILTIAZEM [Suspect]
     Active Substance: DILTIAZEM
     Indication: Hypertension
     Dosage: DILTIAZEM HYDROCHLORIDE
     Route: 065
  4. DILTIAZEM [Suspect]
     Active Substance: DILTIAZEM
     Indication: Coronary artery disease
     Route: 065
  5. DILTIAZEM [Suspect]
     Active Substance: DILTIAZEM
     Indication: Angina unstable
     Route: 065
  6. DILTIAZEM [Suspect]
     Active Substance: DILTIAZEM
     Dosage: DILTIAZEM HYDROCHLORIDE
     Route: 065
  7. DILTIAZEM [Suspect]
     Active Substance: DILTIAZEM
     Route: 065
  8. DILTIAZEM HYDROCHLORIDE [Suspect]
     Active Substance: DILTIAZEM HYDROCHLORIDE
     Indication: Hypertension
     Route: 065
  9. DILTIAZEM HYDROCHLORIDE [Suspect]
     Active Substance: DILTIAZEM HYDROCHLORIDE
     Indication: Coronary artery disease
     Route: 065
  10. DILTIAZEM HYDROCHLORIDE [Suspect]
     Active Substance: DILTIAZEM HYDROCHLORIDE
     Indication: Chest pain
  11. DILTIAZEM HYDROCHLORIDE [Suspect]
     Active Substance: DILTIAZEM HYDROCHLORIDE
     Indication: Angina pectoris
  12. DIAZEPAM [Suspect]
     Active Substance: DIAZEPAM
     Indication: Insomnia
     Route: 065
  13. DIAZEPAM [Suspect]
     Active Substance: DIAZEPAM
     Indication: Coronary artery disease
  14. DIAZEPAM [Suspect]
     Active Substance: DIAZEPAM
     Indication: Angina pectoris
  15. NITROGLYCERIN [Suspect]
     Active Substance: NITROGLYCERIN
     Indication: Angina pectoris
     Dosage: 0.6 MG/H AT BEDTIME
  16. NITROGLYCERIN [Suspect]
     Active Substance: NITROGLYCERIN
     Indication: Coronary artery disease
     Route: 065
  17. NITROGLYCERIN [Suspect]
     Active Substance: NITROGLYCERIN
     Indication: Chest pain
     Route: 061
  18. NITROGLYCERIN [Suspect]
     Active Substance: NITROGLYCERIN
     Route: 065
  19. NITROGLYCERIN [Suspect]
     Active Substance: NITROGLYCERIN
     Route: 065
  20. NITROGLYCERIN [Suspect]
     Active Substance: NITROGLYCERIN
     Route: 065
  21. NITROGLYCERIN [Suspect]
     Active Substance: NITROGLYCERIN
     Route: 065
  22. NITROGLYCERIN [Suspect]
     Active Substance: NITROGLYCERIN
     Route: 065
  23. NITROGLYCERIN [Suspect]
     Active Substance: NITROGLYCERIN
     Route: 065
  24. NITROGLYCERIN [Suspect]
     Active Substance: NITROGLYCERIN
     Dosage: GLYCERYL TRINITRATE
     Route: 061
  25. NITROGLYCERIN [Suspect]
     Active Substance: NITROGLYCERIN
     Dosage: GLYCERYL TRINITRATE
     Route: 065
  26. NITROGLYCERIN [Suspect]
     Active Substance: NITROGLYCERIN
     Dosage: GLYCERYL TRINITRATE
     Route: 065
  27. NITROGLYCERIN [Suspect]
     Active Substance: NITROGLYCERIN
     Route: 065
  28. NITROGLYCERIN [Suspect]
     Active Substance: NITROGLYCERIN
     Dosage: GLYCERYL TRINITRATE
     Route: 065
  29. NITROGLYCERIN [Suspect]
     Active Substance: NITROGLYCERIN
     Dosage: GLYCERYL TRINITRATE
     Route: 065
  30. NITROGLYCERIN [Suspect]
     Active Substance: NITROGLYCERIN
     Dosage: GLYCERYL TRINITRATE
     Route: 065
  31. ALBUTEROL [Suspect]
     Active Substance: ALBUTEROL
     Indication: Hypertension
     Dosage: 100 UG/PUFF, 2 PUFFS FOUR TIMES DAILY IF NEEDED
     Route: 065
  32. ALBUTEROL [Suspect]
     Active Substance: ALBUTEROL
     Indication: Coronary artery disease
     Route: 065
  33. ALBUTEROL [Suspect]
     Active Substance: ALBUTEROL
     Indication: Chest pain
     Route: 055
  34. ALBUTEROL [Suspect]
     Active Substance: ALBUTEROL
     Indication: Angina pectoris
     Route: 065
  35. ALBUTEROL [Suspect]
     Active Substance: ALBUTEROL
     Indication: Product used for unknown indication
     Route: 065
  36. ALBUTEROL [Suspect]
     Active Substance: ALBUTEROL
     Route: 065
  37. ALBUTEROL [Suspect]
     Active Substance: ALBUTEROL
     Route: 065
  38. ALBUTEROL [Suspect]
     Active Substance: ALBUTEROL
     Dosage: 100 UG/PUFF, 2 PUFFS FOUR TIMES DAILY IF NEEDED
     Route: 065
  39. ALBUTEROL [Suspect]
     Active Substance: ALBUTEROL
     Dosage: 100 UG/PUFF, 2 PUFFS FOUR TIMES DAILY IF NEEDED
     Route: 065
  40. ALBUTEROL [Suspect]
     Active Substance: ALBUTEROL
     Indication: Chest pain
     Route: 065
  41. ALBUTEROL [Suspect]
     Active Substance: ALBUTEROL
     Indication: Angina pectoris
     Route: 065
  42. ALBUTEROL [Suspect]
     Active Substance: ALBUTEROL
     Route: 065
  43. ALBUTEROL [Suspect]
     Active Substance: ALBUTEROL
     Route: 065
  44. ALBUTEROL [Suspect]
     Active Substance: ALBUTEROL
     Route: 065
  45. ALBUTEROL [Suspect]
     Active Substance: ALBUTEROL
     Route: 065
  46. ALBUTEROL [Suspect]
     Active Substance: ALBUTEROL
     Route: 065
  47. ALBUTEROL [Suspect]
     Active Substance: ALBUTEROL
     Route: 065
  48. ALBUTEROL [Suspect]
     Active Substance: ALBUTEROL
     Route: 065
  49. ALBUTEROL [Suspect]
     Active Substance: ALBUTEROL
     Route: 065

REACTIONS (23)
  - Cognitive disorder [Recovered/Resolved]
  - Sedation complication [Recovered/Resolved]
  - Multiple drug therapy [Recovered/Resolved]
  - Drug interaction [Recovered/Resolved]
  - Balance disorder [Recovered/Resolved]
  - Blood calcium decreased [Recovered/Resolved]
  - Drug abuse [Recovered/Resolved]
  - Creatinine renal clearance decreased [Recovered/Resolved]
  - Mobility decreased [Recovered/Resolved]
  - Overdose [Recovered/Resolved]
  - Sedation [Recovered/Resolved]
  - Toxicity to various agents [Recovered/Resolved]
  - Renal function test abnormal [Recovered/Resolved]
  - Creatinine renal clearance increased [Recovered/Resolved]
  - Fall [Recovered/Resolved]
  - Depressed level of consciousness [Recovered/Resolved]
  - Dyspnoea [Recovered/Resolved]
  - Pain [Recovered/Resolved]
  - Orthostatic hypotension [Recovered/Resolved]
  - Hypotension [Recovered/Resolved]
  - Constipation [Recovered/Resolved]
  - Product use in unapproved indication [Recovered/Resolved]
  - Off label use [Recovered/Resolved]
